FAERS Safety Report 8757478 (Version 1)
Quarter: 2012Q4

REPORT INFORMATION
  Report Type: 
  Country: US (occurrence: US)
  Receive Date: 20120828
  Receipt Date: 20120828
  Transmission Date: 20130627
  Serious: Yes (Hospitalization)
  Sender: FDA-Public Use
  Company Number: US-BAYER-2012-087504

PATIENT
  Age: 39 Year
  Sex: Female
  Weight: 99.8 kg

DRUGS (11)
  1. YASMIN [Suspect]
     Indication: CONTRACEPTION
  2. OCELLA [Suspect]
  3. TYLENOL W/CODEINE NO. 3 [Concomitant]
     Indication: PAIN
     Dosage: 1 to 2 tabs Q 6 H PRN (interpreted as every 6 hours as needed)
     Route: 048
     Dates: start: 20101109
  4. MOTRIN [Concomitant]
     Indication: BACK PAIN
     Dosage: 400 mg, TID
     Route: 048
     Dates: start: 20101109
  5. VICODIN [Concomitant]
     Indication: BACK PAIN
     Dosage: 5/500 mg 1 tab (interpreted as tablet) Q 6 H (interpreted as every 6 hours)
     Route: 048
     Dates: start: 20101110
  6. BUSPIRONE [Concomitant]
     Dosage: 10 mg 2 tablets every morning and 4 tablets every evening
     Route: 048
     Dates: start: 20101109, end: 20120216
  7. BUSPIRONE [Concomitant]
     Dosage: 10 mg,  2 tablets every morning and 4 tablets every evening
     Route: 048
     Dates: start: 20090302, end: 20120229
  8. CYMBALTA [Concomitant]
     Dosage: 60 mg, daily
     Route: 048
     Dates: start: 20080207, end: 20120216
  9. TRAZODONE [Concomitant]
     Dosage: 150 mg, HS
     Route: 048
     Dates: start: 20090105, end: 20120216
  10. ATENOLOL [Concomitant]
  11. LIPITOR [Concomitant]

REACTIONS (2)
  - Acute myocardial infarction [None]
  - Pulmonary embolism [Recovered/Resolved]
